FAERS Safety Report 20815837 (Version 1)
Quarter: 2022Q2

REPORT INFORMATION
  Report Type: Spontaneous
  Country: IT (occurrence: IT)
  Receive Date: 20220511
  Receipt Date: 20220511
  Transmission Date: 20220721
  Serious: Yes (Other)
  Sender: FDA-Public Use
  Company Number: IT-ABBVIE-22K-083-4390365-00

PATIENT
  Age: 56 Year
  Sex: Male

DRUGS (3)
  1. TESTOSTERONE [Suspect]
     Active Substance: TESTOSTERONE
     Indication: Product used for unknown indication
     Dosage: 1 PUFF/DAY
     Route: 065
  2. TESTOSTERONE UNDECANOATE [Suspect]
     Active Substance: TESTOSTERONE UNDECANOATE
     Indication: Hypogonadism
     Route: 048
     Dates: start: 2019
  3. TESTOSTERONE [Suspect]
     Active Substance: TESTOSTERONE
     Indication: Product used for unknown indication
     Route: 065

REACTIONS (9)
  - Erectile dysfunction [Unknown]
  - Vitamin D deficiency [Unknown]
  - Product availability issue [Unknown]
  - Underdose [Unknown]
  - Diabetes mellitus [Unknown]
  - Overdose [Unknown]
  - Blood testosterone increased [Recovering/Resolving]
  - Libido decreased [Unknown]
  - Asthenia [Unknown]
